FAERS Safety Report 8760044 (Version 2)
Quarter: 2012Q4

REPORT INFORMATION
  Report Type: 
  Country: US (occurrence: US)
  Receive Date: 20120829
  Receipt Date: 20120924
  Transmission Date: 20130627
  Serious: Yes (Hospitalization)
  Sender: FDA-Public Use
  Company Number: US-009507513-1208USA011152

PATIENT
  Age: 55 Year
  Sex: Female

DRUGS (3)
  1. VICTRELIS [Suspect]
     Indication: HEPATITIS C
     Dosage: 800 mg, tid
     Route: 048
     Dates: start: 20120607
  2. REBETOL [Concomitant]
  3. PEGASYS [Concomitant]

REACTIONS (3)
  - Haemoglobin decreased [Unknown]
  - Pruritus [Unknown]
  - Rash [Unknown]
